FAERS Safety Report 6415286-1 (Version None)
Quarter: 2009Q4

REPORT INFORMATION
  Report Type: 
  Country: None (occurrence: None)
  Receive Date: 20091022
  Receipt Date: 20091007
  Transmission Date: 20100525
  Serious: Yes (Death, Hospitalization, Other)
  Sender: FDA-Public Use
  Company Number: AUR-APL-2009-00947

PATIENT
  Age: 76 Year
  Sex: Male

DRUGS (7)
  1. METFORMIN HCL [Suspect]
     Indication: DIABETES MELLITUS
     Dosage: UNK - UNK - ORAL
     Route: 048
     Dates: end: 20080208
  2. ALDACTONE [Suspect]
     Indication: HYPERTENSION
     Dosage: UNK - UNK - ORAL
     Route: 048
     Dates: end: 20080208
  3. RAMIPRIL [Suspect]
     Indication: HYPERTENSION
     Dosage: UNK - UNK - ORAL
     Route: 048
     Dates: end: 20080208
  4. FUROSEMIDE [Concomitant]
  5. AMAREL [Concomitant]
  6. CORDIPATCH [Concomitant]
  7. ANDACOR [Concomitant]

REACTIONS (8)
  - CARDIO-RESPIRATORY ARREST [None]
  - DIARRHOEA [None]
  - HYPERKALAEMIA [None]
  - LACTIC ACIDOSIS [None]
  - OEDEMA PERIPHERAL [None]
  - ORTHOPNOEA [None]
  - RENAL FAILURE ACUTE [None]
  - VENTRICULAR TACHYCARDIA [None]
